FAERS Safety Report 5198113-2 (Version None)
Quarter: 2006Q4

REPORT INFORMATION
  Report Type: 
  Country: None (occurrence: None)
  Receive Date: 20061228
  Receipt Date: 20061228
  Transmission Date: 20070319
  Serious: No
  Sender: FDA-Public Use
  Company Number: None

PATIENT
  Sex: Female

DRUGS (1)
  1. LYRICA [Suspect]
     Dosage: 50 MG BID PO
     Route: 048
     Dates: start: 20060626, end: 20060706

REACTIONS (3)
  - HYPOTHERMIA [None]
  - LETHARGY [None]
  - SOMNOLENCE [None]
